FAERS Safety Report 4617780-2 (Version None)
Quarter: 2005Q1

REPORT INFORMATION
  Report Type: 
  Country: None (occurrence: None)
  Receive Date: 20050324
  Receipt Date: 20050314
  Transmission Date: 20050727
  Serious: Yes (Other)
  Sender: FDA-Public Use
  Company Number: US-GLAXOSMITHKLINE-A0549578A

PATIENT
  Age: 55 Year
  Sex: Female
  Weight: 57 kg

DRUGS (1)
  1. NICODERM CQ [Suspect]
     Route: 062
     Dates: start: 20050309, end: 20050310

REACTIONS (5)
  - DIZZINESS [None]
  - FEELING ABNORMAL [None]
  - GASTROENTERITIS VIRAL [None]
  - MEDICATION ERROR [None]
  - NAUSEA [None]
